FAERS Safety Report 14861103 (Version 1)
Quarter: 2018Q2

REPORT INFORMATION
  Report Type: Spontaneous
  Country: US (occurrence: US)
  Receive Date: 20180508
  Receipt Date: 20180508
  Transmission Date: 20180711
  Serious: No
  Sender: FDA-Public Use
  Company Number: US-BAYER-2018-085301

PATIENT
  Age: 20 Year
  Sex: Female

DRUGS (4)
  1. SKYLA [Suspect]
     Active Substance: LEVONORGESTREL
     Indication: CONTRACEPTION
     Dosage: 14 MCG/24HR, CONT
     Route: 015
     Dates: start: 201702
  2. SKYLA [Suspect]
     Active Substance: LEVONORGESTREL
     Indication: GENITAL HAEMORRHAGE
  3. SKYLA [Suspect]
     Active Substance: LEVONORGESTREL
     Indication: ABDOMINAL PAIN LOWER
  4. MIDOL COMPLETE [Suspect]
     Active Substance: ACETAMINOPHEN\CAFFEINE\PYRILAMINE MALEATE
     Indication: ABDOMINAL PAIN LOWER
     Dosage: UNK
     Route: 048
     Dates: start: 2017

REACTIONS (5)
  - Hypomenorrhoea [None]
  - Drug ineffective [None]
  - Abdominal pain lower [None]
  - Insomnia [None]
  - Dysmenorrhoea [None]

NARRATIVE: CASE EVENT DATE: 2017
